FAERS Safety Report 6844014-0 (Version None)
Quarter: 2010Q3

REPORT INFORMATION
  Report Type: 
  Country: None (occurrence: None)
  Receive Date: 20100715
  Receipt Date: 20100706
  Transmission Date: 20110219
  Serious: Yes (Hospitalization, Other)
  Sender: FDA-Public Use
  Company Number: US-WATSON-2010-07406

PATIENT
  Sex: Male
  Weight: 79.365 kg

DRUGS (11)
  1. CARTIA XT (WATSON LABORATORIES) [Suspect]
     Indication: HYPERTENSION
     Dosage: UNK
     Route: 048
     Dates: start: 20000101
  2. CARTIA XT (WATSON LABORATORIES) [Suspect]
     Dosage: UNK
     Route: 048
     Dates: start: 19900101, end: 20000101
  3. PRIVINIL [Suspect]
     Indication: HYPERTENSION
     Dosage: UNK
     Route: 048
     Dates: start: 19900101, end: 20000101
  4. HYTRIN [Suspect]
     Indication: HYPERTENSION
     Dosage: 10 MG, DAILY
     Route: 048
     Dates: start: 20000101, end: 20040101
  5. HYTRIN [Suspect]
     Dosage: 10 MG, DAILY
     Route: 048
     Dates: start: 19900101, end: 20000101
  6. MORPHINE SULFATE [Concomitant]
     Indication: BACK PAIN
     Dosage: 15 MG, 2 IN 2 D
     Route: 048
  7. MORPHINE SULFATE [Concomitant]
     Indication: BREAKTHROUGH PAIN
     Dosage: 15 MG, AS REQUIRED
     Route: 048
  8. ALPRAZOLAM [Concomitant]
     Indication: ANXIETY
     Dosage: UNK, AS REQUIRED
     Route: 048
  9. CYCLOBENZAPRINE HYDROCHLORIDE [Concomitant]
     Indication: MUSCLE SPASMS
     Dosage: UNK
     Route: 048
  10. AMITRIPTYLINE HYDROCHLORIDE [Concomitant]
     Indication: NEURALGIA
     Dosage: UNK
     Route: 048
  11. AXOTAL                             /00727001/ [Concomitant]
     Indication: MIGRAINE
     Dosage: UNK
     Route: 048

REACTIONS (5)
  - DRUG INEFFECTIVE [None]
  - HEPATIC ENZYME INCREASED [None]
  - LOSS OF CONSCIOUSNESS [None]
  - PANCREATITIS [None]
  - POLYARTHRITIS [None]
